FAERS Safety Report 9921353 (Version 1)
Quarter: 2014Q1

REPORT INFORMATION
  Report Type: Spontaneous
  Country: US (occurrence: US)
  Receive Date: 20140225
  Receipt Date: 20140225
  Transmission Date: 20141002
  Serious: Yes (Other)
  Sender: FDA-Public Use
  Company Number: PHHY2014US021219

PATIENT
  Age: 36 Year
  Sex: Male

DRUGS (5)
  1. CICLOSPORIN [Suspect]
     Indication: IMMUNOSUPPRESSION
  2. PREDNISONE [Suspect]
     Indication: IMMUNOSUPPRESSION
  3. AZATHIOPRINE [Suspect]
     Indication: IMMUNOSUPPRESSION
  4. CANDESARTAN SANDOZ [Suspect]
     Indication: PROTEINURIA
  5. SIROLIMUS [Suspect]
     Indication: IMMUNOSUPPRESSION

REACTIONS (5)
  - Nephropathy toxic [Recovering/Resolving]
  - Transplant rejection [Unknown]
  - Blood creatinine increased [Recovering/Resolving]
  - Proteinuria [Recovering/Resolving]
  - Chronic allograft nephropathy [Unknown]
